FAERS Safety Report 13382569 (Version 6)
Quarter: 2020Q2

REPORT INFORMATION
  Report Type: Report from Study
  Country: US (occurrence: US)
  Receive Date: 20170329
  Receipt Date: 20200521
  Transmission Date: 20200713
  Serious: No
  Sender: FDA-Public Use
  Company Number: PHHY2017US044055

PATIENT
  Age: 49 Year
  Sex: Female

DRUGS (5)
  1. GILENYA [Suspect]
     Active Substance: FINGOLIMOD HYDROCHLORIDE
     Indication: MULTIPLE SCLEROSIS
     Dosage: UNK, QD
     Route: 048
  2. DIPHENHYDRAMINE. [Concomitant]
     Active Substance: DIPHENHYDRAMINE
     Indication: DERMATITIS
     Dosage: UNK
     Route: 065
     Dates: start: 20190412, end: 20200226
  3. TERBINAFINE. [Concomitant]
     Active Substance: TERBINAFINE
     Indication: DERMATOPHYTOSIS OF NAIL
     Dosage: UNK
     Route: 065
     Dates: start: 20191111
  4. GILENYA [Suspect]
     Active Substance: FINGOLIMOD HYDROCHLORIDE
     Dosage: UNK
     Route: 048
     Dates: start: 20180124
  5. HYDROCORTISONE. [Concomitant]
     Active Substance: HYDROCORTISONE
     Indication: DERMATITIS
     Dosage: UNK
     Route: 065
     Dates: start: 20200412, end: 20200226

REACTIONS (12)
  - Hypertension [Unknown]
  - Blood cholesterol increased [Unknown]
  - Tinea infection [Unknown]
  - Dermatitis [Unknown]
  - Lymphocyte count decreased [Unknown]
  - Fibrous histiocytoma [Unknown]
  - Infection [Unknown]
  - Melanocytic naevus [Unknown]
  - Choking sensation [Unknown]
  - Disturbance in attention [Unknown]
  - Aversion [Unknown]
  - Low density lipoprotein increased [Unknown]

NARRATIVE: CASE EVENT DATE: 20170102
